FAERS Safety Report 12209224 (Version 1)
Quarter: 2016Q1

REPORT INFORMATION
  Report Type: Spontaneous
  Country: JP (occurrence: JP)
  Receive Date: 20160324
  Receipt Date: 20160324
  Transmission Date: 20160526
  Serious: Yes (Hospitalization, Other)
  Sender: FDA-Public Use
  Company Number: PHHY2014JP177611

PATIENT
  Age: 66 Year
  Sex: Female

DRUGS (2)
  1. TYKERB [Suspect]
     Active Substance: LAPATINIB DITOSYLATE
     Indication: HER-2 POSITIVE BREAST CANCER
     Dosage: 1000 MG, QD
     Route: 048
     Dates: start: 20140425, end: 20140430
  2. OLMETEC [Concomitant]
     Active Substance: OLMESARTAN MEDOXOMIL
     Indication: HYPERTENSION
     Dosage: 20 MG, QD
     Route: 048
     Dates: end: 20140501

REACTIONS (16)
  - Fatigue [Recovered/Resolved]
  - Blood calcium decreased [Unknown]
  - Body temperature increased [Unknown]
  - Hyperuricaemia [Recovered/Resolved]
  - Blood creatinine increased [Recovered/Resolved]
  - Hyperphosphataemia [Recovered/Resolved]
  - Blood urea increased [Unknown]
  - Blood phosphorus increased [Unknown]
  - C-reactive protein increased [Unknown]
  - Tumour lysis syndrome [Recovered/Resolved]
  - Blood sodium decreased [Unknown]
  - Drug interaction [Unknown]
  - Decreased appetite [Recovered/Resolved]
  - Enterocolitis [Unknown]
  - Electrolyte imbalance [Unknown]
  - Diarrhoea [Recovered/Resolved]

NARRATIVE: CASE EVENT DATE: 20140427
